FAERS Safety Report 15594479 (Version 2)
Quarter: 2018Q4

REPORT INFORMATION
  Report Type: Spontaneous
  Country: KR (occurrence: KR)
  Receive Date: 20181106
  Receipt Date: 20181121
  Transmission Date: 20190205
  Serious: Yes (Death, Hospitalization, Other)
  Sender: FDA-Public Use
  Company Number: KP-009507513-1811KOR000359

PATIENT
  Age: 27 Year
  Sex: Male

DRUGS (3)
  1. NOXAFIL [Suspect]
     Active Substance: POSACONAZOLE
     Indication: ANTIFUNGAL PROPHYLAXIS
     Dosage: 300 MILLIGRAM, Q12H (FOR 2 DOSES)
     Route: 048
     Dates: start: 20161027, end: 201610
  2. NOXAFIL [Suspect]
     Active Substance: POSACONAZOLE
     Dosage: 300 MILLIGRAM, ONCE DAILY
     Route: 048
     Dates: start: 201610, end: 20170122
  3. PREDNISOLONE. [Concomitant]
     Active Substance: PREDNISOLONE
     Indication: GRAFT VERSUS HOST DISEASE IN SKIN
     Dosage: MORE THAN 1 MG/KG PER DAY (HIGH DOSE STEROID THERAPY)

REACTIONS (4)
  - Pathogen resistance [Unknown]
  - Septic shock [Fatal]
  - Malignant neoplasm progression [Unknown]
  - Bronchopulmonary aspergillosis [Recovering/Resolving]

NARRATIVE: CASE EVENT DATE: 20170117
